FAERS Safety Report 5221627-3 (Version None)
Quarter: 2007Q1

REPORT INFORMATION
  Report Type: 
  Country: None (occurrence: None)
  Receive Date: 20070126
  Receipt Date: 20070126
  Transmission Date: 20070707
  Serious: Yes (Other)
  Sender: FDA-Public Use
  Company Number: None

PATIENT
  Age: 85 Year
  Sex: Male
  Weight: 83.9154 kg

DRUGS (2)
  1. ELIDEL [Suspect]
     Indication: POST PROCEDURAL COMPLICATION
     Dosage: ONE TUBE
     Dates: start: 20051126, end: 20051126
  2. ELIDEL [Suspect]
     Indication: PRURITUS
     Dosage: ONE TUBE
     Dates: start: 20051126, end: 20051126

REACTIONS (3)
  - HERPES ZOSTER [None]
  - POST HERPETIC NEURALGIA [None]
  - UNEVALUABLE EVENT [None]
